FAERS Safety Report 10905876 (Version 2)
Quarter: 2016Q1

REPORT INFORMATION
  Report Type: Spontaneous
  Country: GB (occurrence: GB)
  Receive Date: 20150311
  Receipt Date: 20160226
  Transmission Date: 20160525
  Serious: Yes (Other)
  Sender: FDA-Public Use
  Company Number: GB-WATSON-2015-04518

PATIENT
  Age: 15 Year
  Sex: Female

DRUGS (3)
  1. ADAPALENE. [Concomitant]
     Active Substance: ADAPALENE
     Indication: ACNE
     Dosage: UNK UNK, UNKNOWN
     Route: 061
  2. LYMECYCLINE [Concomitant]
     Active Substance: LYMECYCLINE
     Indication: ACNE
     Dosage: 408 MG, DAILY
     Route: 065
  3. TRIMETHOPRIM (UNKNOWN) [Suspect]
     Active Substance: TRIMETHOPRIM
     Indication: ACNE
     Dosage: 300 MG, BID
     Route: 048
     Dates: start: 20150105, end: 20150215

REACTIONS (4)
  - Oedema [Recovered/Resolved]
  - Erythema [Recovered/Resolved]
  - Macule [Recovered/Resolved]
  - Fixed drug eruption [Recovered/Resolved]

NARRATIVE: CASE EVENT DATE: 20150216
